FAERS Safety Report 4996533-X (Version None)
Quarter: 2006Q2

REPORT INFORMATION
  Report Type: 
  Country: None (occurrence: None)
  Receive Date: 20060505
  Receipt Date: 20060420
  Transmission Date: 20061013
  Serious: Yes (Other)
  Sender: FDA-Public Use
  Company Number: IMP_2240_2006

PATIENT
  Age: 80 Year
  Sex: Female

DRUGS (9)
  1. CLARITIN [Suspect]
     Indication: COUGH
     Dosage: 1 TAB QDAY
     Dates: start: 20060411, end: 20060419
  2. CLARITIN [Suspect]
     Indication: INCREASED UPPER AIRWAY SECRETION
     Dosage: 1 TAB QDAY
     Dates: start: 20060411, end: 20060419
  3. CLARITIN [Suspect]
     Indication: RESPIRATORY TRACT INFECTION
     Dosage: 1 TAB QDAY
     Dates: start: 20060411, end: 20060419
  4. SYNTHROID [Concomitant]
  5. ISTALOL [Concomitant]
  6. ACTONEL [Concomitant]
  7. LEXAPRO [Concomitant]
  8. HYZAAR [Concomitant]
  9. XANAX [Concomitant]

REACTIONS (6)
  - CONSTIPATION [None]
  - DIARRHOEA [None]
  - DIZZINESS [None]
  - HAEMATOCHEZIA [None]
  - NAUSEA [None]
  - VOMITING [None]
